FAERS Safety Report 19197745 (Version 3)
Quarter: 2021Q2

REPORT INFORMATION
  Report Type: Report from Study
  Country: DE (occurrence: DE)
  Receive Date: 20210430
  Receipt Date: 20210514
  Transmission Date: 20210717
  Serious: Yes (Hospitalization, Other)
  Sender: FDA-Public Use
  Company Number: DE-INSMED, INC.-2021-08301-DE

PATIENT
  Age: 51 Year
  Sex: Male

DRUGS (1)
  1. ARIKAYCE [Suspect]
     Active Substance: AMIKACIN
     Indication: MYCOBACTERIAL INFECTION
     Dosage: 590 MILLIGRAM, QD
     Route: 055
     Dates: start: 20210415, end: 20210428

REACTIONS (17)
  - Purulent discharge [Unknown]
  - Throat irritation [Unknown]
  - Oral mucosal erythema [Not Recovered/Not Resolved]
  - Palliative care [Unknown]
  - Pharyngeal erythema [Not Recovered/Not Resolved]
  - Decreased appetite [Not Recovered/Not Resolved]
  - Rash [Recovered/Resolved]
  - Dyspnoea at rest [Recovering/Resolving]
  - Product dose omission issue [Unknown]
  - Chest pain [Unknown]
  - Pyrexia [Not Recovered/Not Resolved]
  - General physical health deterioration [Not Recovered/Not Resolved]
  - Productive cough [Not Recovered/Not Resolved]
  - Nausea [Not Recovered/Not Resolved]
  - Cough [Unknown]
  - Haemoptysis [Unknown]
  - Oral mucosal eruption [Recovered/Resolved]

NARRATIVE: CASE EVENT DATE: 2021
